FAERS Safety Report 25140760 (Version 1)
Quarter: 2025Q1

REPORT INFORMATION
  Report Type: Spontaneous
  Country: US (occurrence: None)
  Receive Date: 20250329
  Receipt Date: 20250329
  Transmission Date: 20250408
  Serious: Yes (Hospitalization)
  Sender: FDA-CTU
  Company Number: None

PATIENT
  Age: 73 Year
  Sex: Male
  Weight: 71.6 kg

DRUGS (13)
  1. EVEROLIMUS [Suspect]
     Active Substance: EVEROLIMUS
     Dates: end: 20250321
  2. ATORVASTATIN [Concomitant]
     Active Substance: ATORVASTATIN
  3. ASPIRIN [Concomitant]
     Active Substance: ASPIRIN
  4. COENZYME Q10 [Concomitant]
     Active Substance: DIETARY SUPPLEMENT\UBIDECARENONE
  5. FUROSEMIDE [Concomitant]
     Active Substance: FUROSEMIDE
  6. GABAPENTIN [Concomitant]
     Active Substance: GABAPENTIN
  7. LANREOTIDE [Concomitant]
     Active Substance: LANREOTIDE
  8. METAMUCIL [Concomitant]
     Active Substance: PLANTAGO SEED
  9. METFORMIN [Concomitant]
     Active Substance: METFORMIN HYDROCHLORIDE
  10. montekulast sodium [Concomitant]
  11. Ocular vitamin (AREDS) [Concomitant]
  12. POTASSIUM CHLORIDE [Concomitant]
     Active Substance: POTASSIUM CHLORIDE
  13. VONOPRAZAN [Concomitant]
     Active Substance: VONOPRAZAN

REACTIONS (4)
  - Dyspnoea [None]
  - Headache [None]
  - Vomiting [None]
  - Hypertension [None]

NARRATIVE: CASE EVENT DATE: 20250322
